FAERS Safety Report 23190110 (Version 2)
Quarter: 2024Q1

REPORT INFORMATION
  Report Type: Report from Study
  Country: US (occurrence: US)
  Receive Date: 20231116
  Receipt Date: 20240110
  Transmission Date: 20240410
  Serious: No
  Sender: FDA-Public Use
  Company Number: US-002147023-NVSC2023US243053

PATIENT
  Age: 53 Year
  Sex: Female

DRUGS (1)
  1. COSENTYX [Suspect]
     Active Substance: SECUKINUMAB
     Indication: Rheumatoid arthritis
     Dosage: 150 MG, QW
     Route: 058
     Dates: start: 202310

REACTIONS (3)
  - Inappropriate schedule of product administration [Unknown]
  - Product supply issue [Unknown]
  - Pain [Unknown]

NARRATIVE: CASE EVENT DATE: 20231103
